FAERS Safety Report 21909700 (Version 2)
Quarter: 2023Q1

REPORT INFORMATION
  Report Type: Report from Study
  Country: PL (occurrence: PL)
  Receive Date: 20230125
  Receipt Date: 20230210
  Transmission Date: 20230418
  Serious: Yes (Hospitalization)
  Sender: FDA-Public Use
  Company Number: PL-BRISTOL-MYERS SQUIBB COMPANY-2023-008104

PATIENT

DRUGS (17)
  1. CABOZANTINIB [Suspect]
     Active Substance: CABOZANTINIB
     Indication: Renal cell carcinoma
     Dosage: MOST RECENT DOSE IS ON 18-OCT-2022
     Route: 048
     Dates: start: 20180725
  2. NIVOLUMAB [Suspect]
     Active Substance: NIVOLUMAB
     Indication: Renal cell carcinoma
     Dosage: MOST RECENT DOSE RECEIVED ON 10-JUL-2020
     Route: 042
     Dates: start: 20180725
  3. INSULIN HUMAN [Concomitant]
     Active Substance: INSULIN HUMAN
     Indication: Product used for unknown indication
     Dosage: 22 UNITS (NOT SPECIFIED)
     Route: 042
     Dates: start: 20180301
  4. HYDROCHLOROTHIAZIDE [Concomitant]
     Active Substance: HYDROCHLOROTHIAZIDE
     Indication: Blood pressure increased
     Dosage: 25 MG
     Route: 048
     Dates: start: 20181004
  5. METHIMAZOLE [Concomitant]
     Active Substance: METHIMAZOLE
     Indication: Product used for unknown indication
     Dosage: 5 MG
     Route: 048
     Dates: start: 20190110
  6. METHIMAZOLE [Concomitant]
     Active Substance: METHIMAZOLE
     Dosage: 2.5 MG
     Route: 048
     Dates: start: 20220202
  7. ONDANSETRON [Concomitant]
     Active Substance: ONDANSETRON
     Indication: Nausea
     Dosage: 16 MG
     Route: 048
     Dates: start: 20190110
  8. POTASSIUM CHLORIDE [Concomitant]
     Active Substance: POTASSIUM CHLORIDE
     Indication: Product used for unknown indication
     Dosage: 782 MG
     Route: 048
     Dates: start: 20190124
  9. LOPERAMIDE [Concomitant]
     Active Substance: LOPERAMIDE
     Indication: Diarrhoea
     Dosage: 2 MG
     Route: 048
     Dates: start: 20190131
  10. ESSULIV FORTE [Concomitant]
     Indication: Product used for unknown indication
     Dosage: 900 MG
     Route: 048
     Dates: start: 20190918
  11. DOXANORM [Concomitant]
     Indication: Blood pressure increased
     Dosage: 4 MG
     Route: 048
     Dates: start: 20210318
  12. GENSULIN [Concomitant]
     Indication: Product used for unknown indication
     Dosage: 10 UNIT (NOT SPECIFIED)
     Route: 042
     Dates: start: 20180301
  13. EPLERENONE [Concomitant]
     Active Substance: EPLERENONE
     Indication: Product used for unknown indication
     Dosage: 50 MG
     Route: 048
     Dates: start: 20210520
  14. TORSEMIDE [Concomitant]
     Active Substance: TORSEMIDE
     Indication: Product used for unknown indication
     Dosage: 5 MG
     Route: 048
     Dates: start: 20220119
  15. TORSEMIDE [Concomitant]
     Active Substance: TORSEMIDE
     Dosage: 10 MG
     Route: 048
     Dates: start: 20220330
  16. AMLODIPINE BESYLATE [Concomitant]
     Active Substance: AMLODIPINE BESYLATE
     Indication: Blood pressure increased
     Dosage: 10 MG
     Route: 048
     Dates: start: 20180919
  17. NEBIVOLOL [Concomitant]
     Active Substance: NEBIVOLOL
     Indication: Blood pressure increased
     Dosage: 5 MG
     Route: 048
     Dates: start: 20181004

REACTIONS (1)
  - Anaemia [Recovering/Resolving]

NARRATIVE: CASE EVENT DATE: 20230116
